FAERS Safety Report 9716245 (Version 1)
Quarter: 2013Q4

REPORT INFORMATION
  Report Type: Spontaneous
  Country: US (occurrence: US)
  Receive Date: 20131127
  Receipt Date: 20131127
  Transmission Date: 20140711
  Serious: Yes (Hospitalization, Disabling)
  Sender: FDA-Public Use
  Company Number: US-SA-2013SA122046

PATIENT
  Age: 54 Year
  Sex: Male

DRUGS (7)
  1. ALLEGRA [Suspect]
     Route: 065
  2. ADVAIR [Suspect]
     Indication: ASTHMA
     Dosage: DOSE- 500/50 MCG (1 PUFF)
     Route: 065
  3. SINGULAIR [Suspect]
     Route: 065
  4. PREDNISONE [Suspect]
     Indication: ASTHMA
     Route: 065
  5. SALBUTAMOL SULFATE [Concomitant]
  6. ALL OTHER THERAPEUTIC PRODUCTS [Concomitant]
  7. VACCINES [Concomitant]

REACTIONS (11)
  - Apparent death [Recovered/Resolved with Sequelae]
  - Septic shock [Recovered/Resolved with Sequelae]
  - Pneumonia [Recovered/Resolved with Sequelae]
  - Painful respiration [Recovered/Resolved with Sequelae]
  - Pneumothorax [Recovered/Resolved with Sequelae]
  - Dyspnoea [Recovered/Resolved with Sequelae]
  - Pneumothorax [Recovered/Resolved with Sequelae]
  - Adverse event [Recovered/Resolved with Sequelae]
  - Procedural pain [Recovered/Resolved with Sequelae]
  - Disability [Recovered/Resolved with Sequelae]
  - Drug hypersensitivity [Recovered/Resolved with Sequelae]
